FAERS Safety Report 4608816-3 (Version None)
Quarter: 2005Q1

REPORT INFORMATION
  Report Type: 
  Country: None (occurrence: None)
  Receive Date: 20050311
  Receipt Date: 20050225
  Transmission Date: 20050727
  Serious: Yes (Hospitalization, Other)
  Sender: FDA-Public Use
  Company Number: GBR-2005-0001575

PATIENT
  Age: 65 Year
  Sex: Male

DRUGS (7)
  1. HYDROMORPHONE HCL [Suspect]
     Dosage: 8 MG, DAILY, ORAL
     Route: 048
  2. XANAX [Suspect]
     Dosage: 0.5 MG, TID, ORAL
     Route: 048
  3. CETORNAN (ORNITHINE OXOGLURATE) [Suspect]
     Dosage: 1 UNIT, DAILY, ORAL
     Route: 048
  4. LOVENOX [Suspect]
     Dosage: 1 UNIT, DAILY, SUBCUTANEOUS
     Route: 058
  5. PAROXETINE HCL [Suspect]
     Dosage: 1 UNIT, DAILY, ORAL
     Route: 048
  6. MIXTARD HUMAN 70/30 [Suspect]
     Dosage: SUBCUTANEOUS
     Route: 058
  7. NAVELBINE [Concomitant]

REACTIONS (9)
  - ANOREXIA [None]
  - CONDITION AGGRAVATED [None]
  - CONFUSIONAL STATE [None]
  - DEHYDRATION [None]
  - DISORIENTATION [None]
  - GENERAL PHYSICAL HEALTH DETERIORATION [None]
  - NERVOUS SYSTEM DISORDER [None]
  - RENAL FAILURE ACUTE [None]
  - VOMITING [None]
